FAERS Safety Report 9100085 (Version 1)
Quarter: 2013Q1

REPORT INFORMATION
  Report Type: Spontaneous
  Country: BR (occurrence: BR)
  Receive Date: 20130215
  Receipt Date: 20130215
  Transmission Date: 20140127
  Serious: Yes (Hospitalization)
  Sender: FDA-Public Use
  Company Number: BR-BRISTOL-MYERS SQUIBB COMPANY-17364605

PATIENT
  Age: 59 Year
  Sex: Male

DRUGS (6)
  1. KOMBIGLYZE XR [Suspect]
     Indication: DIABETES MELLITUS
     Dosage: 1DF:5+1000MG
     Route: 048
     Dates: start: 201301
  2. ONGLYZA TABS 5 MG [Suspect]
     Indication: DIABETES MELLITUS
     Route: 048
     Dates: end: 201301
  3. GLUCOVANCE [Suspect]
     Dosage: 1DF:500/5 UNIT NOS
  4. METFORMIN HCL [Concomitant]
     Indication: DIABETES MELLITUS
  5. INSULIN [Concomitant]
     Dosage: 1DF:30U
  6. ASPIRINA [Concomitant]

REACTIONS (3)
  - Labyrinthitis [Recovered/Resolved]
  - Diabetes mellitus inadequate control [Recovered/Resolved]
  - Blood pressure increased [Recovered/Resolved]
